FAERS Safety Report 6486159-3 (Version None)
Quarter: 2009Q4

REPORT INFORMATION
  Report Type: 
  Country: None (occurrence: None)
  Receive Date: 20091207
  Receipt Date: 20091201
  Transmission Date: 20100525
  Serious: Yes (Death)
  Sender: FDA-Public Use
  Company Number: 2009US004240

PATIENT
  Sex: Female

DRUGS (1)
  1. PROGRAF [Suspect]
     Indication: RENAL TRANSPLANT

REACTIONS (1)
  - DEATH [None]
